FAERS Safety Report 5948973-X (Version None)
Quarter: 2008Q4

REPORT INFORMATION
  Report Type: 
  Country: None (occurrence: None)
  Receive Date: 20081111
  Receipt Date: 20081030
  Transmission Date: 20090506
  Serious: Yes (Hospitalization)
  Sender: FDA-Public Use
  Company Number: FR-PFIZER INC-2008086464

PATIENT
  Sex: Female
  Weight: 93 kg

DRUGS (1)
  1. CHAMPIX [Suspect]
     Indication: EX-TOBACCO USER
     Route: 048
     Dates: start: 20071120, end: 20080104

REACTIONS (7)
  - ABDOMINAL PAIN [None]
  - CONSTIPATION [None]
  - ERYTHEMA [None]
  - FAECALOMA [None]
  - ILEITIS [None]
  - INTESTINAL OBSTRUCTION [None]
  - VOMITING [None]
